FAERS Safety Report 7235269-1 (Version None)
Quarter: 2011Q1

REPORT INFORMATION
  Report Type: 
  Country: None (occurrence: None)
  Receive Date: 20110110
  Receipt Date: 20110105
  Transmission Date: 20110831
  Serious: Yes (Hospitalization)
  Sender: FDA-Public Use
  Company Number: AE/11/0002/EY

PATIENT
  Age: 41 Year
  Sex: Male

DRUGS (1)
  1. ERYTHROMYCIN STEARATE [Suspect]
     Dates: start: 19860101

REACTIONS (1)
  - CHOLANGITIS SCLEROSING [None]
